FAERS Safety Report 12296689 (Version 1)
Quarter: 2016Q2

REPORT INFORMATION
  Report Type: Spontaneous
  Country: US (occurrence: US)
  Receive Date: 20160422
  Receipt Date: 20160422
  Transmission Date: 20160815
  Serious: No
  Sender: FDA-Public Use
  Company Number: US-LUNDBECK-DKLU2011807

PATIENT
  Sex: Male

DRUGS (2)
  1. SABRIL [Suspect]
     Active Substance: VIGABATRIN
     Indication: INFANTILE SPASMS
     Route: 065
     Dates: start: 201110
  2. SABRIL [Suspect]
     Active Substance: VIGABATRIN
     Route: 065

REACTIONS (4)
  - Anger [Unknown]
  - Aggression [Unknown]
  - Condition aggravated [Unknown]
  - Irritability [Unknown]
